FAERS Safety Report 23405346 (Version 1)
Quarter: 2024Q1

REPORT INFORMATION
  Report Type: Spontaneous
  Country: US (occurrence: None)
  Receive Date: 20240112
  Receipt Date: 20240112
  Transmission Date: 20240410
  Serious: Yes (Life-Threatening, Hospitalization)
  Sender: FDA-Public Use
  Company Number: None

PATIENT
  Weight: 79.38 kg

DRUGS (1)
  1. DUPIXENT [Suspect]
     Active Substance: DUPILUMAB
     Indication: Skin infection
     Dosage: OTHER QUANTITY : AS DIRECTED;?

REACTIONS (9)
  - Movement disorder [None]
  - Therapy cessation [None]
  - Musculoskeletal stiffness [None]
  - Thrombosis [None]
  - Arthralgia [None]
  - Pulmonary embolism [None]
  - Pneumonia [None]
  - Joint swelling [None]
  - Joint swelling [None]

NARRATIVE: CASE EVENT DATE: 20240601
